FAERS Safety Report 26173414 (Version 1)
Quarter: 2025Q4

REPORT INFORMATION
  Report Type: Spontaneous
  Country: EU (occurrence: EU)
  Receive Date: 20251218
  Receipt Date: 20251218
  Transmission Date: 20260117
  Serious: Yes (Hospitalization, Disabling, Other)
  Sender: AUROBINDO
  Company Number: EU-AUROBINDO-AUR-APL-2025-056507

PATIENT
  Age: 29 Year
  Sex: Male

DRUGS (6)
  1. SILDENAFIL [Suspect]
     Active Substance: SILDENAFIL
     Indication: Product used for unknown indication
     Dosage: 10?20 MG DAILY OR EVERY OTHER DAY FOR APPROXIMATELY 3 WEEKS
     Route: 065
  2. DAPOXETINE [Suspect]
     Active Substance: DAPOXETINE
     Indication: Product used for unknown indication
     Dosage: 60 MILLIGRAM (60 MG PRIOR TO SEXUAL ACTIVITY)
     Route: 065
  3. DAPOXETINE [Suspect]
     Active Substance: DAPOXETINE
     Dosage: 30 MILLIGRAM
     Route: 065
  4. Dexona 30 [Concomitant]
     Indication: Deafness neurosensory
     Dosage: 4 MILLIGRAM, TWO TIMES A DAY
     Route: 061
  5. Dexona 30 [Concomitant]
     Dosage: 1 MILLIGRAM, TWO TIMES A DAY (FOLLOWED BY A TAPER TO 1 MG TWICE DAILY AT THE TIME OF ADMISSION.)
     Route: 061
  6. VITAMIN C [Concomitant]
     Active Substance: ASCORBIC ACID
     Indication: Product used for unknown indication
     Dosage: UNK, ONCE A DAY
     Route: 065

REACTIONS (6)
  - Deafness neurosensory [Not Recovered/Not Resolved]
  - Ototoxicity [Not Recovered/Not Resolved]
  - Sudden hearing loss [Not Recovered/Not Resolved]
  - Deafness [Not Recovered/Not Resolved]
  - Tinnitus [Recovered/Resolved]
  - Headache [Unknown]
